FAERS Safety Report 21923010 (Version 3)
Quarter: 2023Q2

REPORT INFORMATION
  Report Type: Spontaneous
  Country: JP (occurrence: JP)
  Receive Date: 20230129
  Receipt Date: 20230419
  Transmission Date: 20230722
  Serious: Yes (Hospitalization, Other)
  Sender: FDA-Public Use
  Company Number: JP-Eisai-202213484_LEN-EC_P_1

PATIENT
  Age: 62 Year
  Sex: Female

DRUGS (3)
  1. LENVIMA [Suspect]
     Active Substance: LENVATINIB
     Indication: Endometrial cancer
     Route: 048
     Dates: start: 20221101, end: 20221110
  2. LENVIMA [Suspect]
     Active Substance: LENVATINIB
     Route: 048
     Dates: start: 20221116, end: 20230116
  3. KEYTRUDA [Suspect]
     Active Substance: PEMBROLIZUMAB
     Indication: Endometrial cancer
     Route: 041
     Dates: start: 20221101, end: 20230116

REACTIONS (4)
  - Erythema multiforme [Recovered/Resolved]
  - Interstitial lung disease [Recovered/Resolved]
  - Nausea [Recovered/Resolved]
  - Hypopituitarism [Recovering/Resolving]

NARRATIVE: CASE EVENT DATE: 20230101
